FAERS Safety Report 6376120-1 (Version None)
Quarter: 2009Q3

REPORT INFORMATION
  Report Type: 
  Country: None (occurrence: None)
  Receive Date: 20090921
  Receipt Date: 20090911
  Transmission Date: 20100115
  Serious: Yes (Hospitalization)
  Sender: FDA-Public Use
  Company Number: GRP09000080

PATIENT
  Age: 71 Year

DRUGS (1)
  1. ACTONEL WITH CALCIUM (COPACKAGED) [Suspect]
     Indication: OSTEOPOROTIC FRACTURE
     Dosage: 35 MG, CYCLIC 1/D, ORAL
     Route: 048

REACTIONS (1)
  - NECROTISING FASCIITIS [None]
